FAERS Safety Report 18997026 (Version 1)
Quarter: 2021Q1

REPORT INFORMATION
  Report Type: Spontaneous
  Country: US (occurrence: US)
  Receive Date: 20210311
  Receipt Date: 20210311
  Transmission Date: 20210420
  Serious: No
  Sender: FDA-Public Use
  Company Number: US-CADILA HEALTHCARE LIMITED-US-ZYDUS-056421

PATIENT
  Sex: Female

DRUGS (2)
  1. METHOTREXATE 2.5 MILLIGRAM TABLET [Suspect]
     Active Substance: METHOTREXATE
     Indication: RHEUMATOID ARTHRITIS
     Dosage: 10 MILLIGRAM TWICE WEEKLY
     Route: 048
     Dates: start: 201901
  2. FOLIC ACID. [Concomitant]
     Active Substance: FOLIC ACID
     Indication: PRODUCT USED FOR UNKNOWN INDICATION
     Dosage: UNK

REACTIONS (2)
  - Genital herpes [Not Recovered/Not Resolved]
  - Lymphadenopathy [Not Recovered/Not Resolved]
